FAERS Safety Report 7496084-7 (Version None)
Quarter: 2011Q2

REPORT INFORMATION
  Report Type: 
  Country: None (occurrence: None)
  Receive Date: 20110523
  Receipt Date: 20110511
  Transmission Date: 20111010
  Serious: Yes (Hospitalization)
  Sender: FDA-Public Use
  Company Number: PL-SANOFI-AVENTIS-2011SA029354

PATIENT
  Age: 70 Year
  Sex: Male
  Weight: 85 kg

DRUGS (12)
  1. BLINDED THERAPY [Suspect]
     Indication: ACUTE CORONARY SYNDROME
     Route: 042
     Dates: start: 20110429, end: 20110429
  2. ZOCOR [Concomitant]
     Dates: start: 20110429
  3. ASPIRIN [Suspect]
  4. TRITACE [Concomitant]
     Dates: start: 20110430, end: 20110503
  5. PLAVIX [Suspect]
     Route: 048
     Dates: start: 20110430
  6. METOPROLOL SUCCINATE [Concomitant]
     Dates: start: 20110429, end: 20110430
  7. ENOXAPARIN SODIUM [Concomitant]
     Route: 058
     Dates: start: 20110430, end: 20110506
  8. TRITACE [Concomitant]
     Dates: start: 20110429, end: 20110430
  9. ASPIRIN [Suspect]
     Indication: ACUTE CORONARY SYNDROME
     Route: 048
     Dates: start: 20110429, end: 20110429
  10. ASPIRIN [Suspect]
     Route: 048
     Dates: start: 20110430
  11. PLAVIX [Suspect]
     Indication: ACUTE CORONARY SYNDROME
     Route: 048
     Dates: start: 20110429, end: 20110429
  12. PREDUCTAL [Concomitant]
     Dates: start: 20110429

REACTIONS (1)
  - VASCULAR PSEUDOANEURYSM [None]
